FAERS Safety Report 12178928 (Version 2)
Quarter: 2016Q1

REPORT INFORMATION
  Report Type: Spontaneous
  Country: TW (occurrence: TW)
  Receive Date: 20160315
  Receipt Date: 20160328
  Transmission Date: 20160526
  Serious: Yes (Hospitalization, Other)
  Sender: FDA-Public Use
  Company Number: ALCN2016TW001930

PATIENT
  Age: 69 Year
  Sex: Female

DRUGS (2)
  1. AMPHOTERICIN B. [Concomitant]
     Active Substance: AMPHOTERICIN B
     Indication: KERATITIS FUNGAL
     Dosage: 1 DF, QH
     Route: 047
  2. NATAMYCIN [Suspect]
     Active Substance: NATAMYCIN
     Indication: KERATITIS FUNGAL
     Dosage: 1 UNK, UNK
     Route: 047

REACTIONS (3)
  - Drug ineffective [Recovered/Resolved with Sequelae]
  - Keratitis [Recovered/Resolved with Sequelae]
  - Hypopyon [Recovered/Resolved with Sequelae]
